FAERS Safety Report 11088104 (Version 8)
Quarter: 2016Q1

REPORT INFORMATION
  Report Type: Spontaneous
  Country: US (occurrence: US)
  Receive Date: 20150504
  Receipt Date: 20160118
  Transmission Date: 20160525
  Serious: Yes (Other)
  Sender: FDA-Public Use
  Company Number: US-PFIZER INC-2015148306

PATIENT
  Age: 64 Year
  Sex: Female
  Weight: 59 kg

DRUGS (12)
  1. SUTENT [Suspect]
     Active Substance: SUNITINIB MALATE
     Indication: GASTROINTESTINAL STROMAL TUMOUR
     Dosage: 50 MG, CYCLIC (DAILY FOR 28 DAYS ON AND 14 OFF)
     Dates: start: 20150422
  2. UREA. [Concomitant]
     Active Substance: UREA
     Dosage: 40 %, AS NEEDED, (APPLY TO CALLOUSES ON FEET OR HANDS TWICE A DAY)
  3. SUTENT [Suspect]
     Active Substance: SUNITINIB MALATE
     Dosage: 37.5 MG, UNK
     Dates: start: 201507
  4. MAGNESIUM CITRATE. [Concomitant]
     Active Substance: MAGNESIUM CITRATE
     Dosage: UNK
  5. VITAMIN B COMPLEX [Concomitant]
     Active Substance: CYANOCOBALAMIN\DEXPANTHENOL\NIACINAMIDE\PYRIDOXINE HYDROCHLORIDE\RIBOFLAVIN 5^-PHOSPHATE SODIUM\THIAMINE HYDROCHLORIDE\VITAMIN B COMPLEX
     Dosage: UNK, DAILY
     Route: 048
  6. PROTEIN [Concomitant]
     Active Substance: PROTEIN
     Dosage: UNK, DAILY, (MEDICLEAR PLUS - 1 SCOOP WITH JUICE, WATER OR MILK)
  7. NORVASC [Concomitant]
     Active Substance: AMLODIPINE BESYLATE
     Dosage: 5 MG, UNK
  8. AMLODIPINE [Concomitant]
     Active Substance: AMLODIPINE BESYLATE
     Dosage: 5 MG, DAILY
     Route: 048
  9. VITAMIN D [Concomitant]
     Active Substance: CHOLECALCIFEROL
     Dosage: 4000 IU, DAILY
     Route: 048
  10. SUTENT [Suspect]
     Active Substance: SUNITINIB MALATE
     Dosage: 37.5 MG, UNK
     Dates: start: 201509
  11. FLUOCINONIDE. [Concomitant]
     Active Substance: FLUOCINONIDE
     Indication: PAIN
     Dosage: 0.05 %, AS NEEDED, (APPLY TO AFFECTED AREAS ON FEET THREE TIMES A DAY)
  12. SUTENT [Suspect]
     Active Substance: SUNITINIB MALATE
     Dosage: 37.5 MG, CYCLIC (2 WEEKS ON/1 WEEK OFF)
     Dates: start: 20150519

REACTIONS (17)
  - Hypertension [Not Recovered/Not Resolved]
  - Dyspepsia [Not Recovered/Not Resolved]
  - Pain in extremity [Not Recovered/Not Resolved]
  - Cough [Unknown]
  - Hyperkeratosis [Not Recovered/Not Resolved]
  - Allergic sinusitis [Unknown]
  - Erythema [Not Recovered/Not Resolved]
  - Palmar-plantar erythrodysaesthesia syndrome [Unknown]
  - Skin toxicity [Unknown]
  - Oral pain [Unknown]
  - Fatigue [Unknown]
  - Pain [Not Recovered/Not Resolved]
  - Sinus disorder [Unknown]
  - Dyspnoea exertional [Unknown]
  - Diarrhoea [Not Recovered/Not Resolved]
  - Dyspnoea [Not Recovered/Not Resolved]
  - Gingival bleeding [Unknown]

NARRATIVE: CASE EVENT DATE: 201505
